FAERS Safety Report 5139440-4 (Version None)
Quarter: 2006Q4

REPORT INFORMATION
  Report Type: 
  Country: None (occurrence: None)
  Receive Date: 20061030
  Receipt Date: 20060530
  Transmission Date: 20070319
  Serious: No
  Sender: FDA-Public Use
  Company Number: US-GLAXOSMITHKLINE-A0607282A

PATIENT
  Age: 81 Year
  Sex: Male
  Weight: 80.9 kg

DRUGS (4)
  1. SEREVENT [Suspect]
     Indication: CHRONIC OBSTRUCTIVE PULMONARY DISEASE
     Dosage: 50MCG TWICE PER DAY
     Route: 055
     Dates: start: 20000101
  2. FLOVENT [Concomitant]
  3. COMBIVENT [Concomitant]
  4. PREVACID [Concomitant]

REACTIONS (6)
  - ANOREXIA [None]
  - ARTHRALGIA [None]
  - DYSPNOEA [None]
  - FATIGUE [None]
  - PHARMACEUTICAL PRODUCT COMPLAINT [None]
  - TEMPERATURE INTOLERANCE [None]
